FAERS Safety Report 17418113 (Version 28)
Quarter: 2022Q4

REPORT INFORMATION
  Report Type: Spontaneous
  Country: DE (occurrence: DE)
  Receive Date: 20200214
  Receipt Date: 20221222
  Transmission Date: 20230113
  Serious: Yes (Other)
  Sender: FDA-Public Use
  Company Number: DE-002147023-NVSC2020DE025881

PATIENT
  Age: 72 Year
  Sex: Female
  Weight: 65.2 kg

DRUGS (20)
  1. LETROZOLE [Suspect]
     Active Substance: LETROZOLE
     Indication: Breast cancer metastatic
     Dosage: 2 MILLIGRAM
     Route: 065
  2. LETROZOLE [Suspect]
     Active Substance: LETROZOLE
     Dosage: 2.5 MILLIGRAM, ONCE A DAY(DAILY DOSE)
     Route: 048
     Dates: start: 20200108
  3. LETROZOLE [Suspect]
     Active Substance: LETROZOLE
     Dosage: 2.5 MILLIGRAM, ONCE A DAY(LAST DOSE RECEIVED ON 23 JUN 2021)
     Route: 048
     Dates: start: 20200110
  4. KISQALI [Suspect]
     Active Substance: RIBOCICLIB
     Indication: Breast cancer metastatic
     Dosage: 600 MILLIGRAM, ONCE A DAY
     Route: 065
  5. KISQALI [Suspect]
     Active Substance: RIBOCICLIB
     Dosage: 600 MILLIGRAM, ONCE A DAY  (SCHEMA 21 DAYS INTAKE, 7 DAYS PAUSE)
     Route: 048
     Dates: start: 20200108
  6. KISQALI [Suspect]
     Active Substance: RIBOCICLIB
     Dosage: 600 MILLIGRAM, ONCE A DAY (SCHEME 21 DAYS INTAKE, 7 DAYS PAUSE)
     Route: 048
     Dates: start: 20200110, end: 20200122
  7. KISQALI [Suspect]
     Active Substance: RIBOCICLIB
     Dosage: UNK UNK, ONCE A DAY (20 GY,QD)
     Route: 062
     Dates: start: 20200127, end: 20200127
  8. KISQALI [Suspect]
     Active Substance: RIBOCICLIB
     Dosage: UNK UNK, ONCE A DAY (8.0 GY,QD)
     Route: 062
     Dates: start: 20200129, end: 20200131
  9. KISQALI [Suspect]
     Active Substance: RIBOCICLIB
     Dosage: 2.5 MILLIGRAM, ONCE A DAY
     Route: 048
     Dates: start: 20200110, end: 20210623
  10. KISQALI [Suspect]
     Active Substance: RIBOCICLIB
     Dosage: UNK MILLIGRAM
     Route: 065
     Dates: start: 20200123, end: 20200203
  11. KISQALI [Suspect]
     Active Substance: RIBOCICLIB
     Dosage: 600 MILLIGRAM,(SCHEMA 21 DAYS INTAKE, 7 DAYS PAUSE)
     Route: 048
     Dates: start: 20200204, end: 20200723
  12. KISQALI [Suspect]
     Active Substance: RIBOCICLIB
     Dosage: UNK
     Route: 065
     Dates: start: 20200724, end: 20200819
  13. KISQALI [Suspect]
     Active Substance: RIBOCICLIB
     Dosage: 600 MILLIGRAM (SCHEMA 21 DAYS INTAKE, 7 DAYS PAUSE)
     Route: 048
     Dates: start: 20200820, end: 20200821
  14. KISQALI [Suspect]
     Active Substance: RIBOCICLIB
     Dosage: 600 MILLIGRAM, ONCE A DAY (SCHEMA 21 DAYS INTAKE, 7 DAYS PAUSE)
     Route: 048
     Dates: start: 20200822
  15. KISQALI [Suspect]
     Active Substance: RIBOCICLIB
     Dosage: 400 MILLIGRAM, ONCE A DAY (SCHEME 21 DAYS INTAKE, 7 DAYS PAUSE)
     Route: 048
     Dates: start: 20200901, end: 20200901
  16. KISQALI [Suspect]
     Active Substance: RIBOCICLIB
     Dosage: 200 MILLIGRAM, ONCE A DAY (SCHEME 21 DAYS INTAKE, 7 DAYS PAUSE)
     Route: 048
     Dates: start: 20200919, end: 20201113
  17. KISQALI [Suspect]
     Active Substance: RIBOCICLIB
     Dosage: 400 MILLIGRAM, ONCE A DAY (DAILY DOSE) (SCHEME 21 DAYS INTAKE, 7 DAYS PAUSE)
     Route: 048
     Dates: start: 20201114, end: 20210331
  18. KISQALI [Suspect]
     Active Substance: RIBOCICLIB
     Dosage: 200 MILLIGRAM, ONCE A DAY (SCHEMA 21 DAYS INTAKE, 7 DAYS PAUSE)
     Route: 048
     Dates: start: 20210401, end: 20210604
  19. KISQALI [Suspect]
     Active Substance: RIBOCICLIB
     Dosage: 400 MILLIGRAM, ONCE A DAY (DAILY DOSE) (SCHEME 21 DAYS INTAKE, 7 DAYS PAUSE)
     Route: 048
     Dates: start: 20210605, end: 20210623
  20. KISQALI [Suspect]
     Active Substance: RIBOCICLIB
     Dosage: UNK UNK, ONCE A DAY (20 GY,QD)
     Route: 062
     Dates: start: 20200128, end: 20200128

REACTIONS (23)
  - Anaemia [Not Recovered/Not Resolved]
  - Brain oedema [Recovered/Resolved]
  - Dizziness [Unknown]
  - Electrocardiogram QT prolonged [Recovered/Resolved]
  - Leukopenia [Recovering/Resolving]
  - Thrombocytopenia [Recovered/Resolved]
  - Diarrhoea [Not Recovered/Not Resolved]
  - Alanine aminotransferase increased [Recovered/Resolved]
  - Blood creatinine increased [Recovering/Resolving]
  - Blood lactate dehydrogenase increased [Recovered/Resolved]
  - Blood urine present [Unknown]
  - Dysuria [Recovered/Resolved]
  - Erythema [Not Recovered/Not Resolved]
  - Gamma-glutamyltransferase increased [Not Recovered/Not Resolved]
  - Protein urine present [Unknown]
  - Mucosal inflammation [Recovering/Resolving]
  - Myopathy [Not Recovered/Not Resolved]
  - Nausea [Not Recovered/Not Resolved]
  - Oedema peripheral [Recovering/Resolving]
  - Weight decreased [Recovered/Resolved]
  - Gastritis [Not Recovered/Not Resolved]
  - Intertrigo [Not Recovered/Not Resolved]
  - Dysphagia [Not Recovered/Not Resolved]

NARRATIVE: CASE EVENT DATE: 20200122
